FAERS Safety Report 6302821-7 (Version None)
Quarter: 2009Q3

REPORT INFORMATION
  Report Type: 
  Country: None (occurrence: None)
  Receive Date: 20090810
  Receipt Date: 20090729
  Transmission Date: 20100115
  Serious: Yes (Other)
  Sender: FDA-Public Use
  Company Number: ES-WYE-H10456909

PATIENT
  Age: 83 Year
  Sex: Male

DRUGS (8)
  1. AMIODARONE HCL [Suspect]
     Indication: ARRHYTHMIA
     Dates: start: 20090101
  2. AMIODARONE HCL [Suspect]
     Indication: ATRIAL FIBRILLATION
  3. METFORMIN [Concomitant]
     Indication: TYPE 2 DIABETES MELLITUS
     Route: 048
     Dates: end: 20090519
  4. SINTROM [Concomitant]
     Dosage: UNSPECIFIED
     Route: 048
  5. AMARYL [Concomitant]
     Indication: TYPE 2 DIABETES MELLITUS
     Route: 048
     Dates: start: 20090519
  6. SEGURIL [Concomitant]
     Route: 048
  7. DIGOXIN [Suspect]
     Route: 048
     Dates: start: 20090101, end: 20090519
  8. ALDACTONE [Concomitant]
     Route: 048

REACTIONS (4)
  - BRADYCARDIA [None]
  - DYSPEPSIA [None]
  - MUSCULAR WEAKNESS [None]
  - THERAPEUTIC AGENT TOXICITY [None]
